FAERS Safety Report 4857986-0 (Version None)
Quarter: 2005Q4

REPORT INFORMATION
  Report Type: 
  Country: None (occurrence: None)
  Receive Date: 20051219
  Receipt Date: 20050426
  Transmission Date: 20060501
  Serious: No
  Sender: FDA-Public Use
  Company Number: US-GLAXOSMITHKLINE-A0555797A

PATIENT
  Age: 81 Year
  Sex: Female

DRUGS (2)
  1. NICODERM CQ [Suspect]
     Route: 062
     Dates: end: 20050425
  2. ULTRACET [Concomitant]

REACTIONS (4)
  - APPLICATION SITE ERYTHEMA [None]
  - APPLICATION SITE SWELLING [None]
  - FEELING ABNORMAL [None]
  - TREMOR [None]
